FAERS Safety Report 21333326 (Version 2)
Quarter: 2022Q3

REPORT INFORMATION
  Report Type: Spontaneous
  Country: US (occurrence: US)
  Receive Date: 20220914
  Receipt Date: 20220915
  Transmission Date: 20221026
  Serious: No
  Sender: FDA-Public Use
  Company Number: US-PFIZER INC-202201156800

PATIENT
  Age: 80 Year
  Sex: Male

DRUGS (4)
  1. PAXLOVID [Suspect]
     Active Substance: NIRMATRELVIR\RITONAVIR
     Indication: COVID-19 treatment
     Dosage: UNK
     Dates: start: 20220910
  2. METAMUCIL [Suspect]
     Active Substance: PLANTAGO SEED
     Dosage: UNK UNK, 3X/DAY (TAKING ONE TEASPOON AFTER MEALS 3 TIMES A DAY)
  3. HELIOCARE [Concomitant]
     Indication: Skin discolouration
     Dosage: UNK
  4. HERBALS\TURMERIC [Concomitant]
     Active Substance: HERBALS\TURMERIC
     Indication: Inflammation

REACTIONS (8)
  - Constipation [Unknown]
  - Nausea [Unknown]
  - Nervousness [Unknown]
  - Gastrointestinal sounds abnormal [Unknown]
  - Abdominal rigidity [Unknown]
  - Hypophagia [Unknown]
  - Ageusia [Unknown]
  - Dysgeusia [Unknown]
